FAERS Safety Report 17962726 (Version 1)
Quarter: 2020Q2

REPORT INFORMATION
  Report Type: Spontaneous
  Country: GB (occurrence: GB)
  Receive Date: 20200630
  Receipt Date: 20200630
  Transmission Date: 20200714
  Serious: Yes (Life-Threatening, Hospitalization)
  Sender: FDA-Public Use
  Company Number: NVSC2020GB182520

PATIENT
  Sex: Male

DRUGS (1)
  1. IMATINIB. [Suspect]
     Active Substance: IMATINIB MESYLATE
     Indication: CHRONIC MYELOID LEUKAEMIA
     Dosage: UNK
     Route: 065

REACTIONS (11)
  - Feeling abnormal [Unknown]
  - Platelet count decreased [Unknown]
  - Weight increased [Unknown]
  - Splenomegaly [Unknown]
  - Weight decreased [Unknown]
  - Infection [Unknown]
  - Muscle spasms [Not Recovered/Not Resolved]
  - White blood cell count increased [Unknown]
  - Eczema [Unknown]
  - Insomnia [None]
  - Nausea [Unknown]
